FAERS Safety Report 25591564 (Version 1)
Quarter: 2025Q3

REPORT INFORMATION
  Report Type: Spontaneous
  Country: US (occurrence: None)
  Receive Date: 20250722
  Receipt Date: 20250722
  Transmission Date: 20251020
  Serious: Yes (Hospitalization)
  Sender: FDA-CTU
  Company Number: None

PATIENT
  Sex: Male
  Weight: 73.8 kg

DRUGS (3)
  1. OPSUMIT [Suspect]
     Active Substance: MACITENTAN
     Indication: Pulmonary arterial hypertension
     Dosage: 10 MG DAILY ORAL
     Route: 048
     Dates: start: 20240306
  2. WINREVAIR [Suspect]
     Active Substance: SOTATERCEPT-CSRK
  3. TYVASO [Suspect]
     Active Substance: TREPROSTINIL

REACTIONS (5)
  - Adverse drug reaction [None]
  - Epistaxis [None]
  - Nasal crusting [None]
  - Haemoglobin increased [None]
  - Blood iron decreased [None]
